FAERS Safety Report 9972174 (Version 2)
Quarter: 2014Q1

REPORT INFORMATION
  Report Type: Report from Study
  Country: US (occurrence: US)
  Receive Date: 20140306
  Receipt Date: 20140306
  Transmission Date: 20141002
  Serious: No
  Sender: FDA-Public Use
  Company Number: US-ABBVIE-12P-163-0975422-00

PATIENT
  Age: 45 Year
  Sex: Male
  Weight: 86.26 kg

DRUGS (11)
  1. HUMIRA [Suspect]
     Indication: CROHN^S DISEASE
     Route: 058
     Dates: start: 2010, end: 201208
  2. ASACOL [Concomitant]
     Indication: CROHN^S DISEASE
  3. MIDODRINE [Concomitant]
     Indication: SYNCOPE
  4. ACIPHEX [Concomitant]
     Indication: GASTROOESOPHAGEAL REFLUX DISEASE
  5. ACIPHEX [Concomitant]
     Indication: BARRETT^S OESOPHAGUS
  6. PROZAC [Concomitant]
     Indication: OBSESSIVE-COMPULSIVE DISORDER
  7. LOVAZA [Concomitant]
     Indication: BLOOD TRIGLYCERIDES INCREASED
  8. ALIGN [Concomitant]
     Indication: PROBIOTIC THERAPY
  9. NADOLOL [Concomitant]
     Indication: PALPITATIONS
  10. CRESTOR [Concomitant]
     Indication: BLOOD CHOLESTEROL INCREASED
  11. SYNTHROID [Concomitant]
     Indication: HYPOTHYROIDISM

REACTIONS (4)
  - Fatigue [Not Recovered/Not Resolved]
  - Infectious mononucleosis [Not Recovered/Not Resolved]
  - Fatigue [Not Recovered/Not Resolved]
  - Epstein-Barr virus test positive [Not Recovered/Not Resolved]
